FAERS Safety Report 8587865 (Version 5)
Quarter: 2014Q1

REPORT INFORMATION
  Report Type: Spontaneous
  Country: US (occurrence: US)
  Receive Date: 20120531
  Receipt Date: 20140120
  Transmission Date: 20141002
  Serious: Yes (Death, Hospitalization, Other)
  Sender: FDA-Public Use
  Company Number: US-ASTRAZENECA-2012SE33486

PATIENT
  Age: 63 Year
  Sex: Male
  Weight: 68 kg

DRUGS (44)
  1. NEXIUM [Suspect]
     Indication: GASTROOESOPHAGEAL REFLUX DISEASE
     Route: 048
     Dates: start: 2005, end: 2006
  2. NEXIUM [Suspect]
     Indication: GASTROOESOPHAGEAL REFLUX DISEASE
     Route: 048
     Dates: start: 2005, end: 2006
  3. NEXIUM [Suspect]
     Indication: GASTROOESOPHAGEAL REFLUX DISEASE
     Route: 048
     Dates: start: 20050406, end: 200604
  4. NEXIUM [Suspect]
     Indication: GASTROOESOPHAGEAL REFLUX DISEASE
     Route: 048
     Dates: start: 20050406, end: 200604
  5. NEXIUM [Suspect]
     Indication: GASTROOESOPHAGEAL REFLUX DISEASE
     Dosage: ONCE A DAY
     Route: 048
     Dates: start: 2005, end: 2008
  6. NEXIUM [Suspect]
     Indication: GASTROOESOPHAGEAL REFLUX DISEASE
     Dosage: ONCE A DAY
     Route: 048
     Dates: start: 2005, end: 2008
  7. NEXIUM [Suspect]
     Indication: GASTROOESOPHAGEAL REFLUX DISEASE
     Route: 048
     Dates: start: 200511
  8. NEXIUM [Suspect]
     Indication: GASTROOESOPHAGEAL REFLUX DISEASE
     Route: 048
     Dates: start: 200511
  9. NEXIUM [Suspect]
     Indication: GASTROOESOPHAGEAL REFLUX DISEASE
     Route: 048
     Dates: start: 20060408
  10. NEXIUM [Suspect]
     Indication: GASTROOESOPHAGEAL REFLUX DISEASE
     Route: 048
     Dates: start: 20060408
  11. ISOSORBIDE MN [Concomitant]
     Dates: start: 20050321
  12. ISOSORBIDE MN [Concomitant]
     Dates: start: 20060417
  13. CRESTOR [Concomitant]
     Dates: start: 20060417
  14. AZITHROMYCIN [Concomitant]
     Dates: start: 20060508
  15. TOPROL XL [Concomitant]
     Dates: start: 20050429
  16. SPIRIVA [Concomitant]
     Indication: CHRONIC OBSTRUCTIVE PULMONARY DISEASE
     Dates: start: 20050601
  17. SPIRIVA [Concomitant]
     Indication: CHRONIC OBSTRUCTIVE PULMONARY DISEASE
     Dates: start: 20060519
  18. FLOMAX [Concomitant]
     Indication: RENAL DISORDER
     Dates: start: 20060525
  19. PLAVIX [Concomitant]
     Indication: CARDIAC DISORDER
     Dates: start: 20060622
  20. DILTIAZEM [Concomitant]
     Dosage: 24 HR CD 180
     Dates: start: 20060622
  21. PROTONIX DR [Concomitant]
     Indication: GASTROOESOPHAGEAL REFLUX DISEASE
     Dates: start: 20060622
  22. PREDNISONE [Concomitant]
     Dates: start: 20060622
  23. ASPIRIN [Concomitant]
     Dates: start: 20060626
  24. COREG [Concomitant]
     Dates: start: 20060626
  25. AVELOX [Concomitant]
     Dates: start: 20050207
  26. MOBIC [Concomitant]
     Dates: start: 20050214
  27. LIPITOR [Concomitant]
     Indication: BLOOD CHOLESTEROL ABNORMAL
     Dates: start: 20050214
  28. KLOR CON [Concomitant]
     Dates: start: 20050216
  29. OYST CAL [Concomitant]
     Dates: start: 20050216
  30. NITROQUICK [Concomitant]
     Dates: start: 20050322
  31. AVANDIA [Concomitant]
     Dates: start: 20050425
  32. FUROSEMIDE [Concomitant]
     Dates: start: 20050520
  33. LEVAQUIN [Concomitant]
     Dates: start: 20050520
  34. ACTONEL [Concomitant]
     Dates: start: 20050601
  35. MILK OF MAGNESIA [Concomitant]
     Dates: start: 2009
  36. MYLANTA [Concomitant]
     Dosage: EVERY FOUR HOURS AS REQUIRED
     Route: 048
     Dates: start: 2009
  37. DULCOLAX [Concomitant]
     Indication: CONSTIPATION
  38. ALLOPURINOL [Concomitant]
  39. EFFIENT [Concomitant]
     Dates: start: 201103
  40. LISINOPRIL [Concomitant]
     Dates: start: 201103
  41. LOVASTATIN [Concomitant]
     Dates: start: 201103
  42. METFORMIN HCL [Concomitant]
  43. ZETIA [Concomitant]
  44. TYLENOL [Concomitant]
     Dosage: AS NEEDED
     Route: 048
     Dates: start: 20090227

REACTIONS (18)
  - Diabetes mellitus [Unknown]
  - Vitamin D deficiency [Unknown]
  - Asthenia [Unknown]
  - Gait disturbance [Unknown]
  - Death [Fatal]
  - Spinal fracture [Unknown]
  - Neoplasm malignant [Unknown]
  - Acute monocytic leukaemia [Unknown]
  - Pneumonia [Unknown]
  - Cellulitis staphylococcal [Unknown]
  - Osteoporosis [Unknown]
  - Bone density decreased [Unknown]
  - Calcium deficiency [Unknown]
  - Osteopenia [Unknown]
  - Ankylosing spondylitis [Unknown]
  - Atrophy [Unknown]
  - Bone disorder [Unknown]
  - Cataract [Unknown]
